FAERS Safety Report 11791725 (Version 2)
Quarter: 2015Q4

REPORT INFORMATION
  Report Type: Spontaneous
  Country: BE (occurrence: BE)
  Receive Date: 20151201
  Receipt Date: 20151201
  Transmission Date: 20160305
  Serious: Yes (Hospitalization, Other)
  Sender: FDA-Public Use
  Company Number: BE-JNJFOC-20151121855

PATIENT
  Age: 89 Year
  Sex: Male

DRUGS (12)
  1. ASAFLOW [Concomitant]
     Active Substance: ASPIRIN
     Route: 065
  2. PANTOPRAZOLE SODIUM. [Concomitant]
     Active Substance: PANTOPRAZOLE SODIUM
     Route: 065
  3. HALCION [Concomitant]
     Active Substance: TRIAZOLAM
     Route: 065
  4. KREDEX [Concomitant]
     Active Substance: CARVEDILOL
     Route: 065
  5. CORUNO [Concomitant]
     Active Substance: MOLSIDOMINE
     Route: 065
  6. L THYROXINE [Concomitant]
     Active Substance: LEVOTHYROXINE SODIUM
     Indication: PRODUCT USED FOR UNKNOWN INDICATION
     Route: 065
  7. TAMSULOSIN HYDROCHLORIDE. [Concomitant]
     Active Substance: TAMSULOSIN HYDROCHLORIDE
     Route: 065
  8. BURINEX [Concomitant]
     Active Substance: BUMETANIDE
     Route: 065
  9. XARELTO [Suspect]
     Active Substance: RIVAROXABAN
     Indication: ATRIAL FIBRILLATION
     Route: 048
     Dates: start: 20140312, end: 20150701
  10. CORDARONE [Concomitant]
     Active Substance: AMIODARONE HYDROCHLORIDE
     Route: 065
  11. COVERSYL [Concomitant]
     Active Substance: PERINDOPRIL
     Route: 065
  12. XARELTO [Suspect]
     Active Substance: RIVAROXABAN
     Indication: CEREBROVASCULAR ACCIDENT PROPHYLAXIS
     Route: 048
     Dates: start: 20140312, end: 20150701

REACTIONS (7)
  - Haemoptysis [Recovered/Resolved]
  - Dehydration [Unknown]
  - Cardiac failure [Recovered/Resolved]
  - Subcutaneous haematoma [Recovered/Resolved]
  - Bronchitis [Unknown]
  - Chest pain [Unknown]
  - Oedema peripheral [Unknown]

NARRATIVE: CASE EVENT DATE: 20150325
